FAERS Safety Report 8189815-4 (Version None)
Quarter: 2012Q1

REPORT INFORMATION
  Report Type: 
  Country: None (occurrence: None)
  Receive Date: 20120307
  Receipt Date: 20110802
  Transmission Date: 20120608
  Serious: No
  Sender: FDA-Public Use
  Company Number: US-GLAXOSMITHKLINE-A0939389A

PATIENT
  Age: 40 Year
  Sex: Female

DRUGS (3)
  1. ESOMEPRAZOLE MAGNESIUM [Concomitant]
  2. ROPINIROLE [Suspect]
     Indication: RESTLESS LEGS SYNDROME
     Dosage: 1MG PER DAY
  3. NAPROXEN [Concomitant]

REACTIONS (3)
  - ABDOMINAL PAIN UPPER [None]
  - SOMNOLENCE [None]
  - VOMITING [None]
